FAERS Safety Report 9075042 (Version 1)
Quarter: 2013Q1

REPORT INFORMATION
  Report Type: Spontaneous
  Country: US (occurrence: US)
  Receive Date: 20130129
  Receipt Date: 20130129
  Transmission Date: 20140127
  Serious: No
  Sender: FDA-Public Use
  Company Number: US-BAUSCH-BL-2012-001621

PATIENT
  Sex: Male

DRUGS (1)
  1. ZYLET (LOTEPREDNOL ETABONATE 0.5% AND TOBRAMYCIN 0.3% OPHTHALMIC SUSPE [Suspect]
     Indication: ULCERATIVE KERATITIS
     Dosage: 1 DROP; TWICE A DAY; OPHTHALMIC
     Route: 047
     Dates: start: 20111128, end: 20120305

REACTIONS (1)
  - Dacryostenosis acquired [Not Recovered/Not Resolved]
